FAERS Safety Report 8160141-2 (Version None)
Quarter: 2012Q1

REPORT INFORMATION
  Report Type: 
  Country: None (occurrence: None)
  Receive Date: 20120223
  Receipt Date: 20120215
  Transmission Date: 20120608
  Serious: Yes (Death, Hospitalization, Other)
  Sender: FDA-Public Use
  Company Number: IT-ELI_LILLY_AND_COMPANY-IT201201005855

PATIENT
  Sex: Male

DRUGS (6)
  1. FOLIC ACID [Concomitant]
     Dosage: UNK
     Dates: start: 20111130
  2. ALIMTA [Suspect]
     Indication: LUNG ADENOCARCINOMA METASTATIC
     Dosage: 700 MG/CYCLE
     Route: 042
     Dates: start: 20111209, end: 20111230
  3. CISPLATIN [Concomitant]
     Indication: LUNG ADENOCARCINOMA METASTATIC
     Dosage: 120 MG, UNK
     Dates: start: 20111209, end: 20111209
  4. CARBOPLATIN [Concomitant]
     Indication: LUNG ADENOCARCINOMA METASTATIC
     Dosage: 450 MG, UNK
     Route: 042
     Dates: start: 20111230, end: 20111230
  5. DOBETIN [Concomitant]
     Dosage: UNK
     Dates: start: 20111130
  6. ZOLEDRONIC [Concomitant]
     Dosage: 4 MG, UNK

REACTIONS (12)
  - LEUKOPENIA [None]
  - NEOPLASM PROGRESSION [None]
  - PARAPARESIS [None]
  - PULMONARY EMBOLISM [None]
  - SPINAL FRACTURE [None]
  - DYSLIPIDAEMIA [None]
  - DEEP VEIN THROMBOSIS [None]
  - NERVOUS SYSTEM DISORDER [None]
  - THROMBOCYTOPENIA [None]
  - MUCOSAL INFLAMMATION [None]
  - NEUTROPENIA [None]
  - PHARYNGEAL INFLAMMATION [None]
